FAERS Safety Report 10433852 (Version 2)
Quarter: 2014Q3

REPORT INFORMATION
  Report Type: Spontaneous
  Country: US (occurrence: US)
  Receive Date: 20140905
  Receipt Date: 20140905
  Transmission Date: 20150326
  Serious: Yes (Hospitalization)
  Sender: FDA-Public Use
  Company Number: US-GLAXOSMITHKLINE-A0761192A

PATIENT
  Sex: Male
  Weight: 109.1 kg

DRUGS (6)
  1. AVANDIA [Suspect]
     Active Substance: ROSIGLITAZONE MALEATE
     Indication: TYPE 2 DIABETES MELLITUS
     Dosage: 4MG PER DAY
     Route: 048
     Dates: start: 20050915, end: 20071112
  2. ATENOLOL. [Concomitant]
     Active Substance: ATENOLOL
  3. TRIAMTERENE. [Concomitant]
     Active Substance: TRIAMTERENE
  4. TUMS [Concomitant]
     Active Substance: CALCIUM CARBONATE
  5. METFORMIN [Concomitant]
     Active Substance: METFORMIN HYDROCHLORIDE
  6. LIPITOR [Concomitant]
     Active Substance: ATORVASTATIN CALCIUM

REACTIONS (2)
  - Cerebral infarction [Unknown]
  - Cerebrovascular accident [Unknown]
